FAERS Safety Report 10744050 (Version 1)
Quarter: 2015Q1

REPORT INFORMATION
  Report Type: Spontaneous
  Country: US (occurrence: None)
  Receive Date: 20150123
  Receipt Date: 20150123
  Transmission Date: 20150721
  Serious: Yes (Disabling)
  Sender: FDA-Public Use
  Company Number: None

PATIENT
  Age: 55 Year
  Sex: Male
  Weight: 83.92 kg

DRUGS (1)
  1. UCERIS [Suspect]
     Active Substance: BUDESONIDE
     Indication: COLITIS
     Dosage: 1 PILL
     Route: 048
     Dates: start: 20150108, end: 20150122

REACTIONS (2)
  - Blood pressure increased [None]
  - Epistaxis [None]

NARRATIVE: CASE EVENT DATE: 20150122
